FAERS Safety Report 11315785 (Version 1)
Quarter: 2015Q3

REPORT INFORMATION
  Report Type: Spontaneous
  Country: US (occurrence: None)
  Receive Date: 20150724
  Receipt Date: 20150724
  Transmission Date: 20151125
  Serious: Yes (Hospitalization)
  Sender: FDA-Public Use
  Company Number: US-H14001-15-01408

PATIENT
  Age: 4 Month
  Sex: Male

DRUGS (1)
  1. AMOXICILLIN. [Suspect]
     Active Substance: AMOXICILLIN
     Indication: PNEUMONIA

REACTIONS (6)
  - Weight decreased [None]
  - Combined immunodeficiency [None]
  - Hepatosplenomegaly [None]
  - Anaemia [None]
  - Granuloma [None]
  - No therapeutic response [None]
